FAERS Safety Report 22392789 (Version 2)
Quarter: 2023Q2

REPORT INFORMATION
  Report Type: Spontaneous
  Country: US (occurrence: US)
  Receive Date: 20230601
  Receipt Date: 20230609
  Transmission Date: 20230721
  Serious: Yes (Disabling, Other)
  Sender: FDA-Public Use
  Company Number: US-REGENERON PHARMACEUTICALS, INC.-2023-069713

PATIENT
  Sex: Male

DRUGS (1)
  1. EYLEA [Suspect]
     Active Substance: AFLIBERCEPT
     Indication: Diabetic retinopathy
     Dosage: 2MG, INTO BOTH EYES; FORMULATION: GERRESHEIMER PFS
     Dates: start: 20210910

REACTIONS (3)
  - Blindness unilateral [Not Recovered/Not Resolved]
  - Retinal ischaemia [Unknown]
  - Endophthalmitis [Recovering/Resolving]

NARRATIVE: CASE EVENT DATE: 20230501
